FAERS Safety Report 12444116 (Version 1)
Quarter: 2016Q2

REPORT INFORMATION
  Report Type: Spontaneous
  Country: US (occurrence: US)
  Receive Date: 20160607
  Receipt Date: 20160607
  Transmission Date: 20160815
  Serious: No
  Sender: FDA-Public Use
  Company Number: US-SA-2016SA052974

PATIENT
  Age: 72 Year
  Sex: Female

DRUGS (4)
  1. LEVOTHYROXINE. [Concomitant]
     Active Substance: LEVOTHYROXINE
  2. AMOXICILLIN. [Concomitant]
     Active Substance: AMOXICILLIN
     Indication: URINARY TRACT INFECTION
  3. SOLOSTAR [Concomitant]
     Active Substance: DEVICE
     Dates: start: 20160311
  4. TOUJEO [Suspect]
     Active Substance: INSULIN GLARGINE
     Dosage: DOSE:20 UNIT(S)
     Route: 065
     Dates: start: 20160311

REACTIONS (4)
  - Hyperhidrosis [Unknown]
  - Tremor [Unknown]
  - Fatigue [Unknown]
  - Weight increased [Unknown]
